FAERS Safety Report 8427900-X (Version None)
Quarter: 2012Q2

REPORT INFORMATION
  Report Type: 
  Country: None (occurrence: None)
  Receive Date: 20120611
  Receipt Date: 20120605
  Transmission Date: 20120825
  Serious: Yes (Life-Threatening, Hospitalization, Disabling, Other)
  Sender: FDA-Public Use
  Company Number: US-ASTRAZENECA-2012SE17871

PATIENT
  Age: 60 Year
  Sex: Female
  Weight: 113.9 kg

DRUGS (3)
  1. SEROQUEL [Suspect]
     Indication: DEPRESSION
     Route: 048
     Dates: start: 20090812
  2. SYNTHROID [Concomitant]
     Indication: THYROID DISORDER
  3. ACTOS [Concomitant]

REACTIONS (3)
  - POSTOPERATIVE WOUND INFECTION [None]
  - BACK PAIN [None]
  - WEIGHT DECREASED [None]
